FAERS Safety Report 17419866 (Version 2)
Quarter: 2021Q1

REPORT INFORMATION
  Report Type: Spontaneous
  Country: US (occurrence: US)
  Receive Date: 20200214
  Receipt Date: 20210123
  Transmission Date: 20210419
  Serious: Yes (Hospitalization, Other)
  Sender: FDA-Public Use
  Company Number: US-SHIRE-US201934928

PATIENT
  Age: 73 Year
  Sex: Male

DRUGS (8)
  1. GATTEX [Suspect]
     Active Substance: TEDUGLUTIDE\WATER
     Dosage: 0.265 MILLILITER
     Route: 058
     Dates: start: 20191008
  2. GATTEX [Suspect]
     Active Substance: TEDUGLUTIDE\WATER
     Dosage: 0.265 MILLILITER
     Route: 058
     Dates: start: 20191008
  3. GATTEX [Suspect]
     Active Substance: TEDUGLUTIDE\WATER
     Indication: PRODUCT USED FOR UNKNOWN INDICATION
     Dosage: 0.13 MILLILITER, 1X/DAY:QD
     Route: 058
     Dates: start: 20191008
  4. GATTEX [Suspect]
     Active Substance: TEDUGLUTIDE\WATER
     Indication: PRODUCT USED FOR UNKNOWN INDICATION
     Dosage: 0.13 MILLILITER, 1X/DAY:QD
     Route: 058
     Dates: start: 20191008
  5. GATTEX [Suspect]
     Active Substance: TEDUGLUTIDE\WATER
     Indication: PRODUCT USED FOR UNKNOWN INDICATION
     Dosage: 0.13 MILLILITER, 1X/DAY:QD
     Route: 058
     Dates: start: 20191008
  6. GATTEX [Suspect]
     Active Substance: TEDUGLUTIDE\WATER
     Indication: PRODUCT USED FOR UNKNOWN INDICATION
     Dosage: 0.13 MILLILITER, 1X/DAY:QD
     Route: 058
     Dates: start: 20191008
  7. GATTEX [Suspect]
     Active Substance: TEDUGLUTIDE\WATER
     Dosage: 0.265 MILLILITER
     Route: 058
     Dates: start: 20191008
  8. GATTEX [Suspect]
     Active Substance: TEDUGLUTIDE\WATER
     Dosage: 0.265 MILLILITER
     Route: 058
     Dates: start: 20191008

REACTIONS (4)
  - Expired product administered [Unknown]
  - Loss of consciousness [Recovering/Resolving]
  - Hospitalisation [Unknown]
  - Product dose omission issue [Recovered/Resolved]

NARRATIVE: CASE EVENT DATE: 20191009
